FAERS Safety Report 17806590 (Version 1)
Quarter: 2020Q2

REPORT INFORMATION
  Report Type: Spontaneous
  Country: US (occurrence: US)
  Receive Date: 20200519
  Receipt Date: 20200519
  Transmission Date: 20200714
  Serious: Yes (Other)
  Sender: FDA-Public Use
  Company Number: None

PATIENT
  Age: 59 Year
  Sex: Female
  Weight: 74 kg

DRUGS (14)
  1. NOREPINEPHRINE. [Concomitant]
     Active Substance: NOREPINEPHRINE
     Dates: start: 20200516, end: 20200519
  2. HEPARIN [Concomitant]
     Active Substance: HEPARIN SODIUM
     Dates: start: 20200513, end: 20200519
  3. LIDOCAINE PATCH [Concomitant]
     Active Substance: LIDOCAINE
     Dates: start: 20200512, end: 20200519
  4. MIDAZOLAM. [Concomitant]
     Active Substance: MIDAZOLAM
     Dates: start: 20200515, end: 20200515
  5. MIDAZOLAM. [Concomitant]
     Active Substance: MIDAZOLAM
     Dates: start: 20200515, end: 20200519
  6. REMDESIVIR. [Suspect]
     Active Substance: REMDESIVIR
     Indication: COVID-19
     Route: 041
     Dates: start: 20200515, end: 20200517
  7. AMOLODIPINE [Concomitant]
     Dates: start: 20200512, end: 20200515
  8. CARVEDILOL. [Concomitant]
     Active Substance: CARVEDILOL
     Dates: start: 20200512, end: 20200515
  9. MULTIVITAMIN [Concomitant]
     Active Substance: VITAMINS
     Dates: start: 20200512, end: 20200519
  10. FENTANYL. [Concomitant]
     Active Substance: FENTANYL
     Dates: start: 20200515, end: 20200519
  11. FAMOTIDINE. [Concomitant]
     Active Substance: FAMOTIDINE
     Dates: start: 20200515, end: 20200519
  12. ATRACURIUM [Concomitant]
     Active Substance: ATRACURIUM
     Dates: start: 20200515, end: 20200515
  13. ACETAMINOPHEN. [Concomitant]
     Active Substance: ACETAMINOPHEN
     Dates: start: 20200512, end: 20200519
  14. ATRACURIUM [Concomitant]
     Active Substance: ATRACURIUM
     Dates: start: 20200516, end: 20200519

REACTIONS (1)
  - Blood creatinine increased [None]

NARRATIVE: CASE EVENT DATE: 20200517
